FAERS Safety Report 19145517 (Version 1)
Quarter: 2021Q2

REPORT INFORMATION
  Report Type: Report from Study
  Country: IT (occurrence: IT)
  Receive Date: 20210416
  Receipt Date: 20210416
  Transmission Date: 20210717
  Serious: Yes (Other)
  Sender: FDA-Public Use
  Company Number: IT-TEVA-2021-IT-1900971

PATIENT
  Age: 47 Year
  Sex: Male
  Weight: 74 kg

DRUGS (4)
  1. FLUOROURACILE TEVA 5 G/100 ML SOLUZIONE PER INFUSIONE [Suspect]
     Active Substance: FLUOROURACIL
     Indication: BLADDER CANCER STAGE IV
     Dosage: 3600 MG
     Route: 042
     Dates: start: 20210212
  2. FLUOROURACILE TEVA 5 G/100 ML SOLUZIONE PER INFUSIONE [Suspect]
     Active Substance: FLUOROURACIL
     Dosage: 600 MG
     Route: 040
     Dates: start: 20210212
  3. FOLINA 15 MG/2 ML SOLUZIONE INIETTABILE (FOLIC ACID) [Suspect]
     Active Substance: FOLIC ACID
     Indication: BLADDER CANCER STAGE IV
     Dosage: 300 MG
     Route: 042
     Dates: start: 20210212
  4. IRINOTECAN HIKMA 20MG/ML CONCENTRATO PER SOLUZIONE PER INFUSIONE [Suspect]
     Active Substance: IRINOTECAN
     Indication: BLADDER CANCER STAGE IV
     Dosage: 270 MG
     Route: 042
     Dates: start: 20210212

REACTIONS (2)
  - Hyperbilirubinaemia [Unknown]
  - Hypertransaminasaemia [Unknown]

NARRATIVE: CASE EVENT DATE: 20210317
